FAERS Safety Report 11920665 (Version 3)
Quarter: 2020Q2

REPORT INFORMATION
  Report Type: Spontaneous
  Country: US (occurrence: US)
  Receive Date: 20160115
  Receipt Date: 20200504
  Transmission Date: 20200713
  Serious: Yes (Hospitalization, Other)
  Sender: FDA-Public Use
  Company Number: US-ASTRAZENECA-2016SE03478

PATIENT
  Sex: Female

DRUGS (12)
  1. DALIRESP [Suspect]
     Active Substance: ROFLUMILAST
     Indication: CHRONIC OBSTRUCTIVE PULMONARY DISEASE
     Route: 048
  2. IBUPROFEN. [Concomitant]
     Active Substance: IBUPROFEN
     Indication: BACK PAIN
     Dosage: TWO TIMES A DAY, 400MG IN THE MORNING AND 200MG IN THE PM
     Route: 048
  3. PROAIR HFA [Concomitant]
     Active Substance: ALBUTEROL SULFATE
     Indication: CHRONIC OBSTRUCTIVE PULMONARY DISEASE
     Dosage: AS REQUIRED
     Route: 055
  4. DALIRESP [Suspect]
     Active Substance: ROFLUMILAST
     Indication: CHRONIC OBSTRUCTIVE PULMONARY DISEASE
     Dosage: CUTTING THE SMALL TABLETS IN HALF AMD TAKING HALF DAILY FOR A LONG TIME AND THEN INCREASING TO A...
     Route: 048
  5. OXYGEN. [Concomitant]
     Active Substance: OXYGEN
     Indication: CHRONIC OBSTRUCTIVE PULMONARY DISEASE
     Dosage: 24 HOURS A DAY 7 DAYS A WEEK ,3 L VIA N/C 24/7
  6. METOPROLOL. [Concomitant]
     Active Substance: METOPROLOL
     Indication: BLOOD PRESSURE MEASUREMENT
  7. LOSARTAN. [Concomitant]
     Active Substance: LOSARTAN
     Indication: BLOOD PRESSURE MEASUREMENT
  8. BUDESONIDE. [Concomitant]
     Active Substance: BUDESONIDE
     Indication: CHRONIC OBSTRUCTIVE PULMONARY DISEASE
     Dosage: TWO TIMES A DAY
     Route: 055
  9. LEVOTHYROXINE. [Concomitant]
     Active Substance: LEVOTHYROXINE
     Indication: CHRONIC OBSTRUCTIVE PULMONARY DISEASE
  10. ALBUTEROL. [Concomitant]
     Active Substance: ALBUTEROL
     Indication: CHRONIC OBSTRUCTIVE PULMONARY DISEASE
     Dosage: 1.25MG AS REQUIRED
     Route: 055
  11. ZOLOFT [Concomitant]
     Active Substance: SERTRALINE HYDROCHLORIDE
  12. DOUNEB [Concomitant]
     Indication: CHRONIC OBSTRUCTIVE PULMONARY DISEASE
     Dosage: FOUR TIMES A DAY, IPRATROPIUM BROMIDE 0.5MG/ALBUTEROL 3MG
     Route: 055

REACTIONS (21)
  - Rheumatoid arthritis [Unknown]
  - Decreased appetite [Unknown]
  - Cholangitis [Unknown]
  - Cardiac disorder [Unknown]
  - Dizziness [Unknown]
  - Gastrooesophageal reflux disease [Unknown]
  - Myocardial infarction [Unknown]
  - Diarrhoea [Unknown]
  - Insomnia [Unknown]
  - Blood cholesterol abnormal [Unknown]
  - Abdominal discomfort [Unknown]
  - Dyspnoea [Recovering/Resolving]
  - Inability to afford medication [Unknown]
  - Intentional product misuse [Unknown]
  - Near death experience [Recovering/Resolving]
  - Hepatic function abnormal [Unknown]
  - Back pain [Unknown]
  - Ageusia [Recovering/Resolving]
  - Weight decreased [Unknown]
  - Nausea [Unknown]
  - Headache [Unknown]
